FAERS Safety Report 17468023 (Version 1)
Quarter: 2020Q1

REPORT INFORMATION
  Report Type: Spontaneous
  Country: US (occurrence: US)
  Receive Date: 20200227
  Receipt Date: 20200227
  Transmission Date: 20200409
  Serious: Yes (Other)
  Sender: FDA-Public Use
  Company Number: NVSC2020US050919

PATIENT
  Sex: Male

DRUGS (12)
  1. METHOTREXATE. [Concomitant]
     Active Substance: METHOTREXATE
     Indication: ACUTE LYMPHOCYTIC LEUKAEMIA
     Dosage: 500 MG/M2 (OVER 3 HOURS, DAYS 1, 15, AND 29)
     Route: 042
     Dates: start: 201609
  2. IMATINIB. [Suspect]
     Active Substance: IMATINIB MESYLATE
     Indication: ACUTE LYMPHOCYTIC LEUKAEMIA
     Dosage: 600 MG, QD
     Route: 048
     Dates: start: 20160715, end: 20170310
  3. PREDNISONE. [Concomitant]
     Active Substance: PREDNISONE
     Indication: ACUTE LYMPHOCYTIC LEUKAEMIA
     Dosage: 75 MG, QD (DAYS 1-34)
     Route: 048
  4. METHOTREXATE. [Concomitant]
     Active Substance: METHOTREXATE
     Dosage: 25 MG/M2 (EVERY 6 HOURS FOR 4 DOSES BEGINNING 6 HOURS AFTER STARTING THE IV METHOTREXATE)
     Route: 048
     Dates: start: 201609
  5. METHOTREXATE. [Concomitant]
     Active Substance: METHOTREXATE
     Dosage: 12 MG, QMO (RESTARTED DOSE #5)
     Route: 037
     Dates: start: 20170815
  6. VINCRISTINE [Concomitant]
     Active Substance: VINCRISTINE
     Dosage: 2 MG, Q4W (FLAT DOSE)
     Route: 065
     Dates: start: 20170202
  7. METHOTREXATE. [Concomitant]
     Active Substance: METHOTREXATE
     Dosage: 20 MG/M2, QW
     Route: 048
     Dates: start: 20170202
  8. METHOTREXATE. [Concomitant]
     Active Substance: METHOTREXATE
     Dosage: 12 MG, QMO (DOSE 8) (PLAN FOR TOTAL 8 DOSES)
     Route: 037
     Dates: start: 20171106
  9. METHOTREXATE. [Concomitant]
     Active Substance: METHOTREXATE
     Dosage: 15 MG, UNKNOWN (DAYS 1, 15 AND 29)
     Route: 037
     Dates: start: 20160926
  10. METHOTREXATE. [Concomitant]
     Active Substance: METHOTREXATE
     Dosage: 12 MG, QMO (DOSE #6)
     Route: 037
     Dates: start: 20170912
  11. VINCRISTINE [Concomitant]
     Active Substance: VINCRISTINE
     Indication: ACUTE LYMPHOCYTIC LEUKAEMIA
     Dosage: 2 MG, UNKNOWN (FLAT DOSE) (DAYS 1, 15, AND 29)
     Route: 042
     Dates: start: 20160926
  12. METHOTREXATE. [Concomitant]
     Active Substance: METHOTREXATE
     Dosage: 12 MG, QMO (DOSE 7)
     Route: 037
     Dates: start: 20171012

REACTIONS (4)
  - Febrile neutropenia [Unknown]
  - Micrococcus infection [Unknown]
  - Deep vein thrombosis [Unknown]
  - Cytogenetic analysis abnormal [Unknown]
